FAERS Safety Report 8350768-7 (Version None)
Quarter: 2012Q2

REPORT INFORMATION
  Report Type: 
  Country: None (occurrence: None)
  Receive Date: 20120510
  Receipt Date: 20120503
  Transmission Date: 20120825
  Serious: Yes (Hospitalization, Congenital Anomaly)
  Sender: FDA-Public Use
  Company Number: US-GLAXOSMITHKLINE-A0976996A

PATIENT
  Sex: Male
  Weight: 2.3 kg

DRUGS (2)
  1. PAXIL [Suspect]
     Indication: DEPRESSION
     Route: 064
  2. PAXIL [Suspect]
     Route: 064

REACTIONS (8)
  - FOETAL EXPOSURE DURING PREGNANCY [None]
  - MATERNAL DRUGS AFFECTING FOETUS [None]
  - TALIPES [None]
  - NO THERAPEUTIC RESPONSE [None]
  - FOOT DEFORMITY [None]
  - GASTROSCHISIS [None]
  - TENDINOUS CONTRACTURE [None]
  - PREMATURE BABY [None]
